FAERS Safety Report 15941685 (Version 1)
Quarter: 2019Q1

REPORT INFORMATION
  Report Type: Spontaneous
  Country: US (occurrence: US)
  Receive Date: 20190209
  Receipt Date: 20190209
  Transmission Date: 20190417
  Serious: Yes (Life-Threatening, Hospitalization)
  Sender: FDA-Public Use
  Company Number: None

PATIENT
  Age: 65 Year
  Sex: Female
  Weight: 103.5 kg

DRUGS (17)
  1. CARDIZEM CD [Concomitant]
     Active Substance: DILTIAZEM HYDROCHLORIDE
  2. LOSARTAN. [Concomitant]
     Active Substance: LOSARTAN
  3. TRULICITY [Suspect]
     Active Substance: DULAGLUTIDE
     Indication: DIABETES MELLITUS
     Dosage: ?          OTHER FREQUENCY:WEEKLY;OTHER ROUTE:INJECTION?
     Dates: start: 20190103, end: 20190110
  4. LEVEMIR [Concomitant]
     Active Substance: INSULIN DETEMIR
  5. GLIPIZIDE. [Concomitant]
     Active Substance: GLIPIZIDE
  6. LEXAPRO [Concomitant]
     Active Substance: ESCITALOPRAM OXALATE
  7. ATROVENT PRN [Concomitant]
  8. KRILL OIL [Concomitant]
     Active Substance: DIETARY SUPPLEMENT
  9. OCUVITE [Concomitant]
     Active Substance: VITAMINS
  10. ELIQUIS [Concomitant]
     Active Substance: APIXABAN
  11. OTEZLA [Concomitant]
     Active Substance: APREMILAST
  12. FLOVENT [Concomitant]
     Active Substance: FLUTICASONE PROPIONATE
  13. LIPITOR [Concomitant]
     Active Substance: ATORVASTATIN CALCIUM
  14. ARIMIDEX [Concomitant]
     Active Substance: ANASTROZOLE
  15. VITAMIN D3 [Concomitant]
     Active Substance: CHOLECALCIFEROL
  16. COQ10 [Concomitant]
     Active Substance: UBIDECARENONE
  17. NEXIUM [Concomitant]
     Active Substance: ESOMEPRAZOLE MAGNESIUM

REACTIONS (5)
  - Product substitution issue [None]
  - Asthma [None]
  - Tremor [None]
  - Gait disturbance [None]
  - Atrial fibrillation [None]

NARRATIVE: CASE EVENT DATE: 20190103
